FAERS Safety Report 15497767 (Version 1)
Quarter: 2018Q4

REPORT INFORMATION
  Report Type: Spontaneous
  Country: US (occurrence: US)
  Receive Date: 20181005
  Receipt Date: 20181005
  Transmission Date: 20190205
  Serious: Yes (Disabling, Other)
  Sender: FDA-Public Use
  Company Number: None

PATIENT

DRUGS (1)
  1. MYRBETRIQ [Suspect]
     Active Substance: MIRABEGRON
     Indication: POLLAKIURIA
     Dosage: ?          QUANTITY:1 PILL;?
     Route: 048
     Dates: start: 20180918, end: 20180919

REACTIONS (3)
  - Abdominal pain lower [None]
  - Chromaturia [None]
  - Vulvovaginal pain [None]

NARRATIVE: CASE EVENT DATE: 20180919
